FAERS Safety Report 13911640 (Version 1)
Quarter: 2017Q3

REPORT INFORMATION
  Report Type: Spontaneous
  Country: US (occurrence: US)
  Receive Date: 20170828
  Receipt Date: 20170828
  Transmission Date: 20171127
  Serious: No
  Sender: FDA-Public Use
  Company Number: US-ROCHE-1142027

PATIENT
  Sex: Female
  Weight: 45 kg

DRUGS (3)
  1. DIURIL [Concomitant]
     Active Substance: CHLOROTHIAZIDE
  2. NUTROPIN [Suspect]
     Active Substance: SOMATROPIN
     Indication: RENAL FAILURE
     Route: 058
     Dates: start: 20010205
  3. PROVENTIL [Concomitant]
     Active Substance: ALBUTEROL

REACTIONS (1)
  - Back pain [Recovered/Resolved]
